FAERS Safety Report 5844512-2 (Version None)
Quarter: 2008Q3

REPORT INFORMATION
  Report Type: 
  Country: None (occurrence: None)
  Receive Date: 20080812
  Receipt Date: 20080730
  Transmission Date: 20090109
  Serious: Yes (Disabling, Other)
  Sender: FDA-Public Use
  Company Number: 430057J08USA

PATIENT
  Age: 45 Year
  Sex: Female
  Weight: 102.0593 kg

DRUGS (5)
  1. NOVANTRONE [Suspect]
     Indication: MULTIPLE SCLEROSIS
     Dates: start: 20080320
  2. REBIF [Suspect]
     Indication: MULTIPLE SCLEROSIS
     Dosage: 44 MCG, 3 IN 1 WEEKS, SUBCUTANEOUS
     Route: 058
     Dates: start: 20070701
  3. PROVIGIL [Concomitant]
  4. LYRICA [Concomitant]
  5. PROVENTIL [Concomitant]

REACTIONS (3)
  - DEAFNESS [None]
  - DISEASE RECURRENCE [None]
  - RECTOCELE [None]
